FAERS Safety Report 6012476-7 (Version None)
Quarter: 2008Q4

REPORT INFORMATION
  Report Type: 
  Country: None (occurrence: None)
  Receive Date: 20081216
  Receipt Date: 20080512
  Transmission Date: 20090506
  Serious: Yes (Other)
  Sender: FDA-Public Use
  Company Number: US-WYE-H04083708

PATIENT
  Age: 44 Year
  Sex: Female
  Weight: 79.45 kg

DRUGS (4)
  1. EFFEXOR XR [Suspect]
     Indication: ANXIETY
     Dosage: 150 MG 1X PER 1 DAY, ORAL
     Route: 048
     Dates: start: 20051101
  2. ATENOLOL [Concomitant]
  3. SYNTHROID [Concomitant]
  4. LAMICTAL [Concomitant]

REACTIONS (10)
  - DRUG WITHDRAWAL SYNDROME [None]
  - ELECTRIC SHOCK [None]
  - HEADACHE [None]
  - HYPERHIDROSIS [None]
  - MIDDLE INSOMNIA [None]
  - NAUSEA [None]
  - NIGHTMARE [None]
  - PARAESTHESIA [None]
  - TINNITUS [None]
  - UNEVALUABLE EVENT [None]
